FAERS Safety Report 8829867 (Version 2)
Quarter: 2012Q4

REPORT INFORMATION
  Report Type: 
  Country: JP (occurrence: JP)
  Receive Date: 20121008
  Receipt Date: 20121024
  Transmission Date: 20130627
  Serious: Yes (Other)
  Sender: FDA-Public Use
  Company Number: JP-TEVA-363242USA

PATIENT
  Age: 62 Year
  Sex: Male

DRUGS (4)
  1. TREANDA [Suspect]
     Indication: B-CELL LYMPHOMA
     Route: 042
     Dates: start: 20120709
  2. RITUXIMAB [Suspect]
     Dates: start: 20120709
  3. SULFAMETHOXAZOLE W/TRIMETHOPRIM [Concomitant]
     Dates: start: 20120708, end: 20120717
  4. ACICLOVIR [Concomitant]
     Dates: start: 20120708, end: 20120717

REACTIONS (1)
  - Blood creatinine increased [Recovered/Resolved]
